FAERS Safety Report 10228041 (Version 1)
Quarter: 2014Q2

REPORT INFORMATION
  Report Type: Spontaneous
  Country: GB (occurrence: GB)
  Receive Date: 20140610
  Receipt Date: 20140610
  Transmission Date: 20141212
  Serious: Yes (Life-Threatening)
  Sender: FDA-Public Use
  Company Number: GB-TEVA-485918ISR

PATIENT
  Age: 80 Year
  Sex: Male

DRUGS (4)
  1. VALPROIC ACID [Suspect]
     Indication: EPILEPSY
     Dates: start: 20140401, end: 20140516
  2. LEVETIRACETAM [Concomitant]
  3. LEVOTHYROXINE [Concomitant]
  4. WARFARIN [Concomitant]

REACTIONS (1)
  - Food interaction [Unknown]
